FAERS Safety Report 25676774 (Version 1)
Quarter: 2025Q3

REPORT INFORMATION
  Report Type: Spontaneous
  Country: US (occurrence: None)
  Receive Date: 20250812
  Receipt Date: 20250812
  Transmission Date: 20251020
  Serious: Yes (Hospitalization)
  Sender: FDA-CTU
  Company Number: None

PATIENT
  Age: 38 Year
  Sex: Female

DRUGS (6)
  1. ENVARSUS XR [Suspect]
     Active Substance: TACROLIMUS
     Indication: Renal transplant
     Dosage: 4 MG DAILY ORAL
     Route: 048
  2. MYCOPHENOLIC ACID [Suspect]
     Active Substance: MYCOPHENOLIC ACID
     Indication: Renal transplant
     Dosage: 180 MG DAILY
  3. vitamin d3 50mcg cap [Concomitant]
  4. PREDNISONE [Concomitant]
     Active Substance: PREDNISONE
  5. ENVARSUS XR [Concomitant]
     Active Substance: TACROLIMUS
  6. MYCOPHENOLIC ACID [Concomitant]
     Active Substance: MYCOPHENOLIC ACID

REACTIONS (2)
  - Pancreatitis [None]
  - Cholecystitis [None]

NARRATIVE: CASE EVENT DATE: 20250718
